FAERS Safety Report 4470766-3 (Version None)
Quarter: 2004Q4

REPORT INFORMATION
  Report Type: 
  Country: None (occurrence: None)
  Receive Date: 20041006
  Receipt Date: 20041006
  Transmission Date: 20050328
  Serious: No
  Sender: FDA-Public Use
  Company Number: None

PATIENT
  Sex: Male
  Weight: 117.9352 kg

DRUGS (2)
  1. VIOXX [Suspect]
     Indication: PAIN
     Dosage: 25 MG DAY ORAL
     Route: 048
  2. VIOXX [Suspect]
     Indication: SWELLING
     Dosage: 25 MG DAY ORAL
     Route: 048

REACTIONS (2)
  - CONDYLOMA ACUMINATUM [None]
  - SKIN PAPILLOMA [None]
